FAERS Safety Report 8237213-7 (Version None)
Quarter: 2012Q1

REPORT INFORMATION
  Report Type: 
  Country: None (occurrence: None)
  Receive Date: 20120327
  Receipt Date: 20120327
  Transmission Date: 20120608
  Serious: Yes (Life-Threatening, Hospitalization)
  Sender: FDA-Public Use
  Company Number: None

PATIENT
  Age: 12 Year
  Sex: Male
  Weight: 52 kg

DRUGS (2)
  1. LAMICTAL [Concomitant]
     Indication: CONVULSION
     Dosage: 100MG
     Route: 048
  2. ZONEGRAN [Suspect]
     Indication: CONVULSION

REACTIONS (9)
  - NEUTROPENIA [None]
  - VIRAL INFECTION [None]
  - HYPOGAMMAGLOBULINAEMIA [None]
  - GENERAL PHYSICAL HEALTH DETERIORATION [None]
  - RESPIRATORY FAILURE [None]
  - VOMITING [None]
  - PYREXIA [None]
  - NAUSEA [None]
  - GRAND MAL CONVULSION [None]
